FAERS Safety Report 15171148 (Version 1)
Quarter: 2018Q3

REPORT INFORMATION
  Report Type: Spontaneous
  Country: US (occurrence: US)
  Receive Date: 20180720
  Receipt Date: 20180720
  Transmission Date: 20181010
  Serious: No
  Sender: FDA-Public Use
  Company Number: US-GLAXOSMITHKLINE-US2018124458

PATIENT
  Age: 60 Year
  Sex: Male

DRUGS (1)
  1. NICODERM CQ [Suspect]
     Active Substance: NICOTINE
     Indication: SMOKING CESSATION THERAPY
     Dosage: 21 MG, UNK
     Dates: start: 20180707, end: 20180710

REACTIONS (6)
  - Application site swelling [Unknown]
  - Application site rash [Unknown]
  - Pruritus [Unknown]
  - Hypersensitivity [Unknown]
  - Application site scab [Unknown]
  - Application site erythema [Unknown]

NARRATIVE: CASE EVENT DATE: 20180710
